FAERS Safety Report 9074833 (Version 1)
Quarter: 2013Q1

REPORT INFORMATION
  Report Type: Spontaneous
  Country: US (occurrence: US)
  Receive Date: 20130129
  Receipt Date: 20130129
  Transmission Date: 20140127
  Serious: No
  Sender: FDA-Public Use
  Company Number: US-ABBOTT-12P-163-0915413-00

PATIENT
  Sex: Male
  Weight: 99.88 kg

DRUGS (1)
  1. LUPRON DEPOT [Suspect]
     Indication: PRODUCT USED FOR UNKNOWN INDICATION
     Dates: start: 201007

REACTIONS (3)
  - Hypersensitivity [Unknown]
  - Heart rate increased [Unknown]
  - Allergic respiratory symptom [Unknown]
